FAERS Safety Report 6253730-3 (Version None)
Quarter: 2009Q2

REPORT INFORMATION
  Report Type: 
  Country: None (occurrence: None)
  Receive Date: 20090630
  Receipt Date: 20090617
  Transmission Date: 20091009
  Serious: Yes (Hospitalization)
  Sender: FDA-Public Use
  Company Number: 236768K09USA

PATIENT
  Age: 55 Year
  Sex: Female
  Weight: 85 kg

DRUGS (6)
  1. REBIF [Suspect]
     Indication: MULTIPLE SCLEROSIS
     Dosage: 44 MCG, 3 IN 1 WEEKS
     Dates: start: 20041213, end: 20090413
  2. TOPROL-XL [Concomitant]
  3. DIOVAN [Concomitant]
  4. CRESTOR [Concomitant]
  5. BACTRIM [Concomitant]
  6. L-THYROXINE (LEVOTHYROXINE) [Concomitant]

REACTIONS (4)
  - NO THERAPEUTIC RESPONSE [None]
  - PERICARDIAL EFFUSION [None]
  - PNEUMONIA [None]
  - VIRAL INFECTION [None]
